FAERS Safety Report 9917384 (Version 3)
Quarter: 2014Q2

REPORT INFORMATION
  Report Type: Spontaneous
  Country: US (occurrence: US)
  Receive Date: 20140221
  Receipt Date: 20140409
  Transmission Date: 20141212
  Serious: No
  Sender: FDA-Public Use
  Company Number: US-PFIZER INC-2014048683

PATIENT
  Age: 59 Year
  Sex: Female
  Weight: 97.05 kg

DRUGS (1)
  1. CELEBREX [Suspect]
     Indication: JOINT SWELLING
     Dosage: 1 DF, 2X/DAY
     Route: 048

REACTIONS (2)
  - Drug ineffective [Not Recovered/Not Resolved]
  - Pain [Not Recovered/Not Resolved]
